FAERS Safety Report 8471124-7 (Version None)
Quarter: 2012Q2

REPORT INFORMATION
  Report Type: 
  Country: None (occurrence: None)
  Receive Date: 20120627
  Receipt Date: 20120621
  Transmission Date: 20120825
  Serious: Yes (Hospitalization)
  Sender: FDA-Public Use
  Company Number: LB-ABBOTT-12P-093-0945439-00

PATIENT
  Sex: Male
  Weight: 83 kg

DRUGS (3)
  1. HYZAAR [Concomitant]
     Indication: PRODUCT USED FOR UNKNOWN INDICATION
     Route: 048
  2. HUMIRA [Suspect]
     Indication: PSORIASIS
     Dosage: LOADING DOSE 80 MG
     Route: 058
     Dates: start: 20100824, end: 20100824
  3. HUMIRA [Suspect]
     Dates: end: 20120526

REACTIONS (3)
  - PYREXIA [None]
  - CHILLS [None]
  - PRURITUS [None]
